FAERS Safety Report 7249811-8 (Version None)
Quarter: 2011Q1

REPORT INFORMATION
  Report Type: 
  Country: None (occurrence: None)
  Receive Date: 20110128
  Receipt Date: 20100415
  Transmission Date: 20110831
  Serious: Yes (Other)
  Sender: FDA-Public Use
  Company Number: A0855738A

PATIENT
  Age: 18 Year
  Sex: Female

DRUGS (3)
  1. GEODON [Suspect]
     Dosage: 160MG UNKNOWN
     Route: 065
  2. WELLBUTRIN [Suspect]
     Route: 048
  3. UNKNOWN [Concomitant]

REACTIONS (1)
  - TARDIVE DYSKINESIA [None]
